FAERS Safety Report 5320515-1 (Version None)
Quarter: 2007Q2

REPORT INFORMATION
  Report Type: 
  Country: None (occurrence: None)
  Receive Date: 20070509
  Receipt Date: 20070503
  Transmission Date: 20071010
  Serious: Yes (Hospitalization)
  Sender: FDA-Public Use
  Company Number: FR-JNJFOC-20070306941

PATIENT
  Age: 89 Year
  Sex: Female
  Weight: 50 kg

DRUGS (4)
  1. RISPERDAL [Suspect]
     Indication: ABNORMAL BEHAVIOUR
     Route: 048
     Dates: start: 20061114, end: 20070312
  2. PREVISCAN [Suspect]
     Indication: CARDIAC FLUTTER
  3. PREVISCAN [Suspect]
     Indication: ATRIAL FIBRILLATION
  4. INSULATARD [Suspect]
     Indication: DIABETES MELLITUS
     Route: 065

REACTIONS (6)
  - ABNORMAL BEHAVIOUR [None]
  - ACINETOBACTER INFECTION [None]
  - ECZEMA [None]
  - ESCHERICHIA INFECTION [None]
  - STAPHYLOCOCCAL INFECTION [None]
  - TOXIC SKIN ERUPTION [None]
